FAERS Safety Report 25184846 (Version 1)
Quarter: 2025Q2

REPORT INFORMATION
  Report Type: Report from Study
  Country: DE (occurrence: DE)
  Receive Date: 20250410
  Receipt Date: 20250410
  Transmission Date: 20250716
  Serious: Yes (Death, Life-Threatening, Other)
  Sender: SANDOZ
  Company Number: DE-SANDOZ-SDZ2025DE021869

PATIENT
  Sex: Male

DRUGS (2)
  1. ETANERCEPT [Suspect]
     Active Substance: ETANERCEPT
     Indication: Product used for unknown indication
     Route: 065
     Dates: start: 201904, end: 202206
  2. METHOTREXATE [Concomitant]
     Active Substance: METHOTREXATE
     Indication: Product used for unknown indication
     Route: 065
     Dates: start: 2019, end: 2024

REACTIONS (3)
  - Cardiac failure acute [Fatal]
  - Glioblastoma [Fatal]
  - Glioblastoma [Unknown]

NARRATIVE: CASE EVENT DATE: 20240523
